FAERS Safety Report 22144379 (Version 1)
Quarter: 2023Q1

REPORT INFORMATION
  Report Type: Other
  Country: CO (occurrence: CO)
  Receive Date: 20230328
  Receipt Date: 20230328
  Transmission Date: 20230418
  Serious: Yes (Hospitalization, Other)
  Sender: FDA-Public Use
  Company Number: CO-Bion-011372

PATIENT
  Age: 27 Year
  Sex: Female

DRUGS (2)
  1. DICLOFENAC POTASSIUM [Suspect]
     Active Substance: DICLOFENAC POTASSIUM
     Indication: Stomatitis
     Route: 030
  2. IBUPROFEN [Suspect]
     Active Substance: IBUPROFEN
     Indication: Stomatitis

REACTIONS (1)
  - Toxic epidermal necrolysis [Recovering/Resolving]
